FAERS Safety Report 16260555 (Version 1)
Quarter: 2019Q2

REPORT INFORMATION
  Report Type: Report from Study
  Country: NL (occurrence: NL)
  Receive Date: 20190501
  Receipt Date: 20190501
  Transmission Date: 20190711
  Serious: Yes (Hospitalization)
  Sender: FDA-Public Use
  Company Number: NL-MYLANLABS-2019M1040876

PATIENT
  Age: 28 Year
  Sex: Female

DRUGS (23)
  1. PENCILLIN [Concomitant]
     Active Substance: PENICILLIN
     Indication: PHARYNGITIS
     Dosage: 1500 MILLIGRAM, QD (500 MG, TID)
     Route: 065
     Dates: start: 20160917, end: 20160924
  2. FENETICILLINA [Concomitant]
     Indication: PHARYNGITIS
     Dosage: UNK
     Route: 065
     Dates: start: 20160919, end: 20160924
  3. FLUTICASONE FUROATE [Concomitant]
     Active Substance: FLUTICASONE FUROATE
     Indication: NASAL DISORDER
     Dosage: 1X DAY 2
     Route: 045
     Dates: start: 20160421
  4. DIAZEPAM. [Concomitant]
     Active Substance: DIAZEPAM
     Indication: PRODUCT USED FOR UNKNOWN INDICATION
     Dosage: (+/- 40 MG WHEN NEEDED)
     Route: 065
  5. DICLOPHENAC [Concomitant]
     Active Substance: DICLOFENAC SODIUM
     Indication: PAIN
     Dosage: 50 MG, WHEN NEEDED
     Route: 065
     Dates: start: 20120424
  6. LEVOCABASTINE [Concomitant]
     Active Substance: LEVOCABASTINE
     Indication: PRODUCT USED FOR UNKNOWN INDICATION
     Dosage: 2X DAY, 1 DROP IN EYE
     Route: 065
  7. OLANZAPINE. [Concomitant]
     Active Substance: OLANZAPINE
     Dosage: 300 UNK (300 MG, PER TWO WEEKS   )
     Route: 065
     Dates: start: 20150226, end: 20160519
  8. PROMETHAZINE [Concomitant]
     Active Substance: PROMETHAZINE\PROMETHAZINE HYDROCHLORIDE
     Indication: SLEEP DISORDER
     Dosage: UNK
     Route: 065
     Dates: start: 20160524, end: 20160909
  9. TERBUTALINE [Concomitant]
     Active Substance: TERBUTALINE
     Indication: ASTHMA
     Dosage: UNK
     Route: 065
     Dates: start: 20100823, end: 20160909
  10. OLANZAPINE. [Concomitant]
     Active Substance: OLANZAPINE
     Indication: PSYCHOTIC DISORDER
     Dosage: 300 MILLIGRAM(300 MG, PER TWO WEEKS)
     Route: 065
     Dates: start: 20160726
  11. FLIXONASE [Concomitant]
     Active Substance: FLUTICASONE PROPIONATE
     Indication: NASAL DISORDER
     Dosage: UNK
     Route: 065
     Dates: start: 20100823, end: 20160909
  12. FLUOXETINE [Concomitant]
     Active Substance: FLUOXETINE HYDROCHLORIDE
     Indication: DEPRESSION
     Dosage: 20 MG, QD
     Route: 065
     Dates: start: 20160513
  13. ATROVENT [Concomitant]
     Active Substance: IPRATROPIUM BROMIDE
     Indication: ASTHMA
     Dosage: WHEN NEEDED
     Route: 065
     Dates: start: 20090824
  14. SPIRIVA [Concomitant]
     Active Substance: TIOTROPIUM BROMIDE MONOHYDRATE
     Indication: ASTHMA
     Dosage: UNK
     Route: 065
     Dates: start: 20090824, end: 20160923
  15. ARIPIPRAZOLE. [Suspect]
     Active Substance: ARIPIPRAZOLE
     Indication: SCHIZOPHRENIA
     Dosage: 400 MG, UNK
     Route: 030
     Dates: start: 20160602, end: 20160704
  16. SERETIDE [Concomitant]
     Active Substance: FLUTICASONE PROPIONATE\SALMETEROL XINAFOATE
     Indication: ASTHMA
     Dosage: 2X DAY 2 DOSES
     Route: 065
     Dates: start: 20090824
  17. ZOPICLON [Concomitant]
     Active Substance: ZOPICLONE
     Indication: SLEEP DISORDER
     Dosage: 7.5 MILLIGRAM, QD(7.5 MG, 1XDAY)
     Route: 065
     Dates: start: 20151118
  18. METFORMINE                         /00082702/ [Concomitant]
     Active Substance: METFORMIN HYDROCHLORIDE
     Indication: DIABETES MELLITUS
     Dosage: 500 MILLIGRAM, TID (500 MG, 3XDAY)
     Route: 065
     Dates: start: 20160128
  19. PROMETHAZINE [Concomitant]
     Active Substance: PROMETHAZINE\PROMETHAZINE HYDROCHLORIDE
     Dosage: UNK
     Route: 065
     Dates: start: 20160922
  20. LEVOCETIRIZINE HYDROCHLORIDE [Concomitant]
     Active Substance: LEVOCETIRIZINE HYDROCHLORIDE
     Indication: HYPERSENSITIVITY
     Dosage: 5 MILLIGRAM, QD(5 MG, 1X DAY)
     Route: 065
     Dates: start: 20131002
  21. PANTOPRAZOL                        /01263204/ [Concomitant]
     Active Substance: PANTOPRAZOLE SODIUM
     Indication: ABDOMINAL DISCOMFORT
     Dosage: 40 MILLIGRAM, QD (40 MG, 1X DAY)
     Route: 065
     Dates: start: 20160609
  22. BIPERIDEN [Concomitant]
     Active Substance: BIPERIDEN
     Indication: EXTRAPYRAMIDAL DISORDER
     Dosage: UNK
     Route: 065
     Dates: start: 20160524, end: 20160909
  23. ARIPIPRAZOLE. [Suspect]
     Active Substance: ARIPIPRAZOLE
     Indication: SCHIZOPHRENIA
     Dosage: 15 MG, QD
     Route: 048
     Dates: start: 20160523

REACTIONS (1)
  - Psychotic disorder [Recovered/Resolved]

NARRATIVE: CASE EVENT DATE: 20160909
